FAERS Safety Report 9487071 (Version 2)
Quarter: 2013Q3

REPORT INFORMATION
  Report Type: Report from Study
  Country: FR (occurrence: FR)
  Receive Date: 20130829
  Receipt Date: 20130829
  Transmission Date: 20140515
  Serious: Yes (Hospitalization)
  Sender: FDA-Public Use
  Company Number: FR-BAYER-2013-001414

PATIENT
  Age: 41 Year
  Sex: Female
  Weight: 39 kg

DRUGS (3)
  1. REGORAFENIB [Suspect]
     Indication: COLORECTAL CANCER METASTATIC
     Dosage: DAILY DOSE 160 MG
     Route: 048
     Dates: start: 20121205, end: 20121226
  2. REGORAFENIB [Suspect]
     Indication: COLORECTAL CANCER METASTATIC
     Dosage: DAILY DOSE 160 MG
     Route: 048
     Dates: start: 20121205
  3. TRAMADOL [Concomitant]
     Indication: ABSCESS
     Dosage: UNK
     Dates: start: 20121106, end: 20121113

REACTIONS (1)
  - Anal fistula [Recovered/Resolved]
